FAERS Safety Report 23548640 (Version 7)
Quarter: 2024Q2

REPORT INFORMATION
  Report Type: Report from Study
  Country: US (occurrence: US)
  Receive Date: 20240221
  Receipt Date: 20240513
  Transmission Date: 20240716
  Serious: Yes (Life-Threatening, Hospitalization, Other)
  Sender: FDA-Public Use
  Company Number: US-ARGENX-2024-ARGX-US001015

PATIENT

DRUGS (2)
  1. VYVGART [Suspect]
     Active Substance: EFGARTIGIMOD ALFA-FCAB
     Indication: Myasthenia gravis
     Dosage: UNK
     Route: 042
     Dates: start: 20230816
  2. VYVGART [Suspect]
     Active Substance: EFGARTIGIMOD ALFA-FCAB
     Dosage: UNK
     Route: 042
     Dates: start: 20231016

REACTIONS (10)
  - Sleep apnoea syndrome [Not Recovered/Not Resolved]
  - Respiratory muscle weakness [Recovering/Resolving]
  - Nephrolithiasis [Unknown]
  - Choking [Recovering/Resolving]
  - Myasthenia gravis [Not Recovered/Not Resolved]
  - Fall [Recovering/Resolving]
  - Poor quality sleep [Recovering/Resolving]
  - Arthralgia [Unknown]
  - Urinary incontinence [Unknown]
  - COVID-19 [Unknown]

NARRATIVE: CASE EVENT DATE: 20240101
